FAERS Safety Report 7642393-8 (Version None)
Quarter: 2011Q3

REPORT INFORMATION
  Report Type: 
  Country: None (occurrence: None)
  Receive Date: 20110728
  Receipt Date: 20100601
  Transmission Date: 20111222
  Serious: No
  Sender: FDA-Public Use
  Company Number: US-MYLANLABS-2010S1009813

PATIENT
  Age: 49 Year
  Sex: Female

DRUGS (3)
  1. ZYRTEC [Concomitant]
  2. LEVOTHYROXINE SODIUM [Suspect]
     Route: 048
     Dates: start: 20081001
  3. LEVOTHYROXINE SODIUM [Suspect]
     Indication: HYPOTHYROIDISM
     Route: 048
     Dates: start: 20081001

REACTIONS (3)
  - DRUG INEFFECTIVE [None]
  - HYPOTHYROIDISM [None]
  - INCORRECT STORAGE OF DRUG [None]
